FAERS Safety Report 4824213-X (Version None)
Quarter: 2005Q4

REPORT INFORMATION
  Report Type: 
  Country: None (occurrence: None)
  Receive Date: 20051108
  Receipt Date: 20051026
  Transmission Date: 20060501
  Serious: Yes (Hospitalization, Other)
  Sender: FDA-Public Use
  Company Number: USA0510110667

PATIENT
  Age: 69 Year
  Sex: Female
  Weight: 54 kg

DRUGS (6)
  1. FORTEO [Suspect]
     Indication: OSTEOPOROSIS
     Dosage: 20 UG DAY
     Dates: start: 20050901
  2. AVINZA [Concomitant]
  3. LORTAB [Concomitant]
  4. GLEEVEC [Concomitant]
  5. SYNTHROID [Concomitant]
  6. FENTANYL [Concomitant]

REACTIONS (8)
  - BACK PAIN [None]
  - DEHYDRATION [None]
  - DRUG INTOLERANCE [None]
  - FLUID INTAKE REDUCED [None]
  - METASTASES TO SPINE [None]
  - NAUSEA [None]
  - NECK PAIN [None]
  - VOMITING [None]
